FAERS Safety Report 10222881 (Version 1)
Quarter: 2014Q2

REPORT INFORMATION
  Report Type: Spontaneous
  Country: US (occurrence: US)
  Receive Date: 20140607
  Receipt Date: 20140607
  Transmission Date: 20141212
  Serious: No
  Sender: FDA-Public Use
  Company Number: US-009507513-1406USA003163

PATIENT
  Sex: Female

DRUGS (1)
  1. NUVARING [Suspect]
     Dosage: 1 DF, 1 RING FOR 3 WEEKS ON, 1 WEEK OFF
     Route: 067
     Dates: start: 20140528

REACTIONS (2)
  - Medical device discomfort [Unknown]
  - Device expulsion [Unknown]
